FAERS Safety Report 5306807-0 (Version None)
Quarter: 2007Q2

REPORT INFORMATION
  Report Type: 
  Country: None (occurrence: None)
  Receive Date: 20070425
  Receipt Date: 20070416
  Transmission Date: 20071010
  Serious: Yes (Other)
  Sender: FDA-Public Use
  Company Number: DE-JNJFOC-20070403301

PATIENT
  Sex: Female
  Weight: 64 kg

DRUGS (2)
  1. REMICADE [Suspect]
  2. REMICADE [Suspect]
     Indication: POLYARTHRITIS

REACTIONS (3)
  - BREAST CANCER [None]
  - IRON DEFICIENCY ANAEMIA [None]
  - PYODERMA GANGRENOSUM [None]
